FAERS Safety Report 7147808-X (Version None)
Quarter: 2010Q4

REPORT INFORMATION
  Report Type: 
  Country: None (occurrence: None)
  Receive Date: 20101207
  Receipt Date: 20101207
  Transmission Date: 20110411
  Serious: No
  Sender: FDA-Public Use
  Company Number: None

PATIENT
  Age: 49 Year
  Sex: Male
  Weight: 95.2554 kg

DRUGS (1)
  1. CIPROFLOXACIN HCL [Suspect]
     Indication: EPIDIDYMITIS
     Dosage: 1 TABLET TWICE DAILY PO
     Route: 048
     Dates: start: 20090701, end: 20090703

REACTIONS (4)
  - ABASIA [None]
  - ARTHRALGIA [None]
  - PAIN IN EXTREMITY [None]
  - TENDONITIS [None]
